FAERS Safety Report 9549775 (Version 2)
Quarter: 2013Q3

REPORT INFORMATION
  Report Type: Spontaneous
  Country: US (occurrence: US)
  Receive Date: 20130924
  Receipt Date: 20130924
  Transmission Date: 20140515
  Serious: No
  Sender: FDA-Public Use
  Company Number: US-ALLERGAN-1307872US

PATIENT
  Sex: Female
  Weight: 56.69 kg

DRUGS (3)
  1. LUMIGAN 0.01% [Suspect]
     Indication: OPEN ANGLE GLAUCOMA
     Dosage: 1 DROP IN EACH EYE, AT NIGHT
     Dates: start: 2012
  2. LUMIGAN [Concomitant]
     Indication: OPEN ANGLE GLAUCOMA
  3. AZOPT [Concomitant]

REACTIONS (3)
  - Visual acuity reduced [Unknown]
  - Dry mouth [Unknown]
  - Dry eye [Not Recovered/Not Resolved]
